FAERS Safety Report 9577057 (Version 1)
Quarter: 2013Q4

REPORT INFORMATION
  Report Type: Spontaneous
  Country: US (occurrence: US)
  Receive Date: 20131001
  Receipt Date: 20131001
  Transmission Date: 20140711
  Serious: No
  Sender: FDA-Public Use
  Company Number: US-AMGEN-USASP2013006265

PATIENT
  Age: 68 Year
  Sex: Male
  Weight: 90.7 kg

DRUGS (13)
  1. ENBREL [Suspect]
     Indication: RHEUMATOID ARTHRITIS
     Dosage: 50 MG, QWK
     Route: 058
  2. HUMIRA [Concomitant]
     Dosage: UNK
  3. HYZAAR [Concomitant]
     Dosage: 100-25
     Route: 048
  4. METHOTREXATE [Concomitant]
     Dosage: 2.5 MG, UNK
     Route: 048
  5. CLARINEX                           /01202601/ [Concomitant]
     Dosage: 5 MG, UNK
     Route: 048
  6. TRAZODONE [Concomitant]
     Dosage: 100 MG, UNK
     Route: 048
  7. ATENOLOL [Concomitant]
     Dosage: 25 MG, UNK
     Route: 048
  8. GABAPENTIN [Concomitant]
     Dosage: 100 MG, UNK
     Route: 048
  9. CITALOPRAM [Concomitant]
     Dosage: 20 MG, UNK
     Route: 048
  10. VITAMIN C                          /00008001/ [Concomitant]
     Dosage: 100 MG, UNK
     Route: 048
  11. IRON [Concomitant]
     Dosage: 325 MG, UNK
     Route: 048
  12. ZINC [Concomitant]
     Dosage: 30 MG, UNK
     Route: 048
  13. OCUVITE                            /01053801/ [Concomitant]
     Dosage: UNK
     Route: 048

REACTIONS (1)
  - Drug ineffective [Unknown]
